FAERS Safety Report 14246387 (Version 1)
Quarter: 2017Q4

REPORT INFORMATION
  Report Type: Spontaneous
  Country: NL (occurrence: NL)
  Receive Date: 20171204
  Receipt Date: 20171204
  Transmission Date: 20180321
  Serious: Yes (Congenital Anomaly, Other)
  Sender: FDA-Public Use
  Company Number: NL-009507513-1711NLD001170

PATIENT
  Sex: Female

DRUGS (2)
  1. PREGNYL [Suspect]
     Active Substance: CHORIOGONADOTROPIN ALFA
     Indication: INFERTILITY
     Dosage: STRENGTH:5000 IE, ONCE A DAY
     Dates: start: 20100721
  2. PREGNYL [Suspect]
     Active Substance: CHORIOGONADOTROPIN ALFA
     Dosage: STRENGTH:5000 IE, ONCE A DAY
     Dates: start: 20100921

REACTIONS (6)
  - Urethral obstruction [Unknown]
  - Kidney malformation [Unknown]
  - Heterotaxia [Unknown]
  - Maternal exposure during pregnancy [Recovered/Resolved]
  - Abortion induced [Unknown]
  - Oligohydramnios [Unknown]

NARRATIVE: CASE EVENT DATE: 2011
